FAERS Safety Report 8561346-9 (Version None)
Quarter: 2012Q3

REPORT INFORMATION
  Report Type: 
  Country: None (occurrence: None)
  Receive Date: 20120802
  Receipt Date: 20120727
  Transmission Date: 20120928
  Serious: Yes (Hospitalization, Other)
  Sender: FDA-Public Use
  Company Number: GB-B.I. PHARMACEUTICALS,INC./RIDGEFIELD-2012-UK-00997UK

PATIENT
  Age: 86 Year
  Sex: Male
  Weight: 83.4 kg

DRUGS (6)
  1. MOVIPREP [Concomitant]
  2. PRADAXA [Suspect]
     Indication: THROMBOSIS PROPHYLAXIS
     Dosage: 75 MG
     Route: 048
     Dates: start: 20120706, end: 20120715
  3. ACETAMINOPHEN AND CODEINE PHOSPHATE [Concomitant]
  4. ZOLMITRIPTAN [Concomitant]
  5. ACETAMINOPHEN [Concomitant]
  6. TRAMADOL HCL [Concomitant]

REACTIONS (1)
  - DEEP VEIN THROMBOSIS [None]
